FAERS Safety Report 6478017-5 (Version None)
Quarter: 2009Q4

REPORT INFORMATION
  Report Type: 
  Country: None (occurrence: None)
  Receive Date: 20091207
  Receipt Date: 20091124
  Transmission Date: 20100525
  Serious: Yes (Other)
  Sender: FDA-Public Use
  Company Number: B0611408A

PATIENT
  Age: 21 Year
  Sex: Female

DRUGS (1)
  1. LAMICTAL [Suspect]

REACTIONS (4)
  - CONDITION AGGRAVATED [None]
  - DERMATITIS ATOPIC [None]
  - EPILEPSY [None]
  - RASH [None]
